FAERS Safety Report 24855267 (Version 1)
Quarter: 2025Q1

REPORT INFORMATION
  Report Type: Spontaneous
  Country: AT (occurrence: AT)
  Receive Date: 20250117
  Receipt Date: 20250117
  Transmission Date: 20250409
  Serious: Yes (Congenital Anomaly)
  Sender: ABBVIE
  Company Number: None

PATIENT
  Sex: Male

DRUGS (3)
  1. CITALOPRAM [Suspect]
     Active Substance: CITALOPRAM
     Indication: Maternal exposure timing unspecified
     Route: 064
  2. MIRTAZAPINE [Suspect]
     Active Substance: MIRTAZAPINE
     Indication: Maternal exposure timing unspecified
     Route: 064
     Dates: start: 2022
  3. PROGESTERONE [Suspect]
     Active Substance: PROGESTERONE
     Indication: Maternal exposure timing unspecified
     Route: 064
     Dates: start: 2023

REACTIONS (2)
  - Epispadias [Recovered/Resolved with Sequelae]
  - Foetal exposure during pregnancy [Unknown]

NARRATIVE: CASE EVENT DATE: 20241001
